FAERS Safety Report 9324333 (Version 2)
Quarter: 2013Q2

REPORT INFORMATION
  Report Type: Spontaneous
  Country: US (occurrence: US)
  Receive Date: 20130603
  Receipt Date: 20130611
  Transmission Date: 20140414
  Serious: Yes (Hospitalization)
  Sender: FDA-Public Use
  Company Number: US-BAXTER-2013BAX020085

PATIENT
  Age: 24 Year
  Sex: Male

DRUGS (10)
  1. DIANEAL LOW CALCIUM [Suspect]
     Indication: PERITONEAL DIALYSIS
     Route: 033
     Dates: start: 2001
  2. DIANEAL LOW CALCIUM [Suspect]
     Indication: PERITONEAL DIALYSIS
     Route: 033
     Dates: start: 2001
  3. AMLODIPINE [Suspect]
     Indication: HYPERTENSION
     Route: 048
  4. AMLODIPINE [Suspect]
     Indication: HYPOTENSION
  5. BENAZEPRIL [Suspect]
     Indication: HYPERTENSION
     Route: 048
     Dates: end: 201305
  6. BENAZEPRIL [Suspect]
     Indication: HYPOTENSION
  7. CARVEDILOL [Suspect]
     Indication: HYPERTENSION
     Route: 048
  8. CARVEDILOL [Suspect]
     Indication: HYPOTENSION
  9. METOPROLOL [Suspect]
     Indication: HYPERTENSION
     Route: 048
     Dates: end: 201305
  10. METOPROLOL [Suspect]
     Indication: HYPOTENSION

REACTIONS (3)
  - Blood pressure fluctuation [Recovering/Resolving]
  - Hypotension [Recovered/Resolved]
  - Dehydration [Recovered/Resolved]
